FAERS Safety Report 13966406 (Version 1)
Quarter: 2017Q3

REPORT INFORMATION
  Report Type: Spontaneous
  Country: FR (occurrence: FR)
  Receive Date: 20170913
  Receipt Date: 20170913
  Transmission Date: 20171128
  Serious: Yes (Other)
  Sender: FDA-Public Use
  Company Number: FR-MERCK KGAA-2026085

PATIENT
  Age: 68 Year
  Sex: Female

DRUGS (1)
  1. NOVOTHYROX [Suspect]
     Active Substance: LEVOTHYROXINE SODIUM
     Indication: POST PROCEDURAL HYPOTHYROIDISM
     Dates: start: 20170401, end: 20170818

REACTIONS (5)
  - Weight increased [Unknown]
  - Headache [Unknown]
  - Fatigue [Unknown]
  - Constipation [Unknown]
  - Product formulation issue [Unknown]

NARRATIVE: CASE EVENT DATE: 20170430
